FAERS Safety Report 5948870-X (Version None)
Quarter: 2008Q4

REPORT INFORMATION
  Report Type: 
  Country: None (occurrence: None)
  Receive Date: 20081111
  Receipt Date: 20081006
  Transmission Date: 20090506
  Serious: Yes (Other)
  Sender: FDA-Public Use
  Company Number: BG-BRISTOL-MYERS SQUIBB COMPANY-14398572

PATIENT
  Sex: Female

DRUGS (1)
  1. ABILIFY [Suspect]
     Dosage: 3-4MONTH.
     Route: 048

REACTIONS (2)
  - BODY TEMPERATURE INCREASED [None]
  - GENERALISED OEDEMA [None]
